FAERS Safety Report 7319969-0 (Version None)
Quarter: 2011Q1

REPORT INFORMATION
  Report Type: 
  Country: None (occurrence: None)
  Receive Date: 20110228
  Receipt Date: 20110223
  Transmission Date: 20110831
  Serious: Yes (Death)
  Sender: FDA-Public Use
  Company Number: PHHY2011US15614

PATIENT
  Sex: Male

DRUGS (9)
  1. KEFLEX [Concomitant]
     Route: 048
  2. LASIX [Concomitant]
     Route: 048
  3. NEXIUM [Concomitant]
     Route: 048
  4. PRILOSEC [Concomitant]
     Route: 048
  5. TAMSULOSIN [Concomitant]
     Route: 048
  6. SUCRALFATE [Concomitant]
  7. LEVOTHYROXINE SODIUM [Concomitant]
     Route: 048
  8. AFINITOR [Suspect]
     Dosage: 5 MG, DAILY
     Route: 048
  9. SPIRONOLACTONE [Concomitant]
     Route: 048

REACTIONS (1)
  - DEATH [None]
